FAERS Safety Report 8513301-2 (Version None)
Quarter: 2012Q3

REPORT INFORMATION
  Report Type: 
  Country: None (occurrence: None)
  Receive Date: 20120716
  Receipt Date: 20120706
  Transmission Date: 20120928
  Serious: Yes (Hospitalization)
  Sender: FDA-Public Use
  Company Number: US-ROCHE-1036791

PATIENT
  Sex: Male
  Weight: 75.74 kg

DRUGS (10)
  1. PACLITAXEL [Suspect]
     Indication: NON-SMALL CELL LUNG CANCER
     Route: 042
     Dates: start: 20100104, end: 20100226
  2. CARBOPLATIN [Suspect]
     Indication: NON-SMALL CELL LUNG CANCER
     Route: 042
     Dates: start: 20100104
  3. COLACE [Concomitant]
     Dates: start: 20100101
  4. AVASTIN [Suspect]
     Indication: NON-SMALL CELL LUNG CANCER
     Route: 042
     Dates: start: 20100104, end: 20100319
  5. EX-LAX (SENNOSIDES) [Concomitant]
     Dates: start: 20100101
  6. NEUPOGEN [Concomitant]
  7. ALBUTEROL SULFATE [Concomitant]
  8. COMBIVENT [Concomitant]
  9. NEXIUM [Concomitant]
  10. HYDROCODONE [Concomitant]

REACTIONS (2)
  - URINARY RETENTION [None]
  - CELLULITIS [None]
